FAERS Safety Report 6527617-2 (Version None)
Quarter: 2010Q1

REPORT INFORMATION
  Report Type: 
  Country: None (occurrence: None)
  Receive Date: 20100105
  Receipt Date: 20091222
  Transmission Date: 20100710
  Serious: Yes (Death, Hospitalization)
  Sender: FDA-Public Use
  Company Number: US-ALEXION-A200901081

PATIENT
  Sex: Male

DRUGS (26)
  1. SOLIRIS [Suspect]
     Indication: PAROXYSMAL NOCTURNAL HAEMOGLOBINURIA
     Dosage: UNK
     Route: 042
     Dates: end: 20091028
  2. ACYCLOVIR [Concomitant]
     Dosage: 400 MG, BID
     Route: 048
     Dates: start: 20091117, end: 20091127
  3. ALLOPURINOL [Concomitant]
     Dosage: 300 MG, QD
     Route: 048
     Dates: start: 20091112
  4. CYTARABINE [Concomitant]
     Dosage: 4000 MG, QD
     Route: 042
     Dates: start: 20091113, end: 20091119
  5. DEXAMETHASONE [Concomitant]
     Dosage: 10 MG, BID
     Route: 048
     Dates: start: 20091117, end: 20091119
  6. FAMOTIDINE [Concomitant]
     Dosage: 20 MG, QD
     Route: 048
     Dates: start: 20091114
  7. FILGRASTIM [Concomitant]
     Dosage: 480 UG, QD
     Route: 058
     Dates: start: 20091126
  8. FOLIC ACID [Concomitant]
     Dosage: 1 MG, QD
     Route: 048
     Dates: start: 20091112
  9. NPH INSULIN [Concomitant]
     Dosage: 6 UNITS, QHS
     Route: 058
     Dates: start: 20091115
  10. NPH INSULIN [Concomitant]
     Dosage: 14 UNITS, Q 08:00
     Route: 058
     Dates: start: 20091116
  11. METFORMIN HCL [Concomitant]
     Dosage: 500 MG, BID
     Route: 048
     Dates: start: 20091113
  12. ONDANSETRON [Concomitant]
     Indication: PREMEDICATION
     Dosage: 24 MG, QD
     Route: 048
     Dates: start: 20091113, end: 20091119
  13. POSACONAZOLE [Concomitant]
     Dosage: 200 MG, TID W/MEALS
     Route: 048
     Dates: start: 20091117
  14. PREDNISONE [Concomitant]
     Dosage: 1 GTT, OU, Q6H
     Dates: start: 20091113, end: 20091123
  15. PROCHLORPERAZINE [Concomitant]
     Indication: PREMEDICATION
     Dosage: 10 MG, QD
     Route: 048
     Dates: start: 20091114, end: 20091119
  16. PROCHLORPERAZINE [Concomitant]
     Indication: NAUSEA
     Dosage: 10 MG, Q6H PRN
     Dates: start: 20091113
  17. ACETAMINOPHEN [Concomitant]
     Indication: BODY TEMPERATURE INCREASED
     Dosage: 650 MG, Q4H PRN
     Dates: start: 20091114
  18. ACETAMINOPHEN [Concomitant]
     Indication: PAIN
  19. PERCOCET [Concomitant]
     Indication: PAIN
     Dosage: 1 TAB, Q6H PRN
     Route: 048
     Dates: start: 20091111, end: 20091121
  20. MAALOX                             /00082501/ [Concomitant]
     Indication: DYSPEPSIA
     Dosage: 30 ML, Q6H PRN
     Route: 048
     Dates: start: 20091112
  21. BENADRYL [Concomitant]
     Indication: PRURITUS
     Dosage: 25 MG, Q6H PRN
     Route: 042
     Dates: start: 20091114
  22. INSULIN [Concomitant]
     Indication: BLOOD GLUCOSE
     Dosage: SLIDING SCALE AC AND HS PRN
     Route: 058
     Dates: start: 20091111
  23. LORAZEPAM [Concomitant]
     Indication: NAUSEA
     Dosage: 1 MG, Q8H PRN
     Route: 042
     Dates: start: 20091113, end: 20091123
  24. PHENERGAN HCL [Concomitant]
     Indication: NAUSEA
     Dosage: 12.50 MG, Q4H PRN
     Route: 042
     Dates: start: 20091112
  25. NORMAL SALINE [Concomitant]
     Dosage: 125 ML, HR
     Route: 042
     Dates: start: 20091112
  26. DAUNORUBICIN HCL [Concomitant]
     Dosage: 120 MG, QD
     Route: 042
     Dates: start: 20091114, end: 20091117

REACTIONS (4)
  - DEATH [None]
  - PNEUMONIA [None]
  - RESPIRATORY FAILURE [None]
  - STAPHYLOCOCCAL BACTERAEMIA [None]
